FAERS Safety Report 25329967 (Version 1)
Quarter: 2025Q2

REPORT INFORMATION
  Report Type: Spontaneous
  Country: US (occurrence: US)
  Receive Date: 20250519
  Receipt Date: 20250519
  Transmission Date: 20250717
  Serious: No
  Sender: BIOCON
  Company Number: US-BIOCON-BCN-2025-000150

PATIENT

DRUGS (1)
  1. ROSUVASTATIN CALCIUM [Suspect]
     Active Substance: ROSUVASTATIN CALCIUM
     Indication: Product used for unknown indication

REACTIONS (6)
  - Muscle spasms [Unknown]
  - Pain in extremity [Unknown]
  - Chromaturia [Unknown]
  - Glycosylated haemoglobin increased [Unknown]
  - Product substitution issue [Unknown]
  - Insurance issue [Unknown]
